FAERS Safety Report 8338363-7 (Version None)
Quarter: 2012Q1

REPORT INFORMATION
  Report Type: 
  Country: None (occurrence: None)
  Receive Date: 20120329
  Receipt Date: 20090418
  Transmission Date: 20120608
  Serious: Yes (Other)
  Sender: FDA-Public Use
  Company Number: PHEH2009US04081

PATIENT
  Age: 72 Year
  Sex: Female

DRUGS (2)
  1. SPORANOX [Suspect]
     Indication: NAIL DISCOLOURATION
  2. LAMISIL [Suspect]
     Indication: ONYCHOMYCOSIS

REACTIONS (4)
  - LIVER INJURY [None]
  - ONYCHOMYCOSIS [None]
  - NAIL DISCOLOURATION [None]
  - OCULAR ICTERUS [None]
